FAERS Safety Report 7185268-3 (Version None)
Quarter: 2010Q4

REPORT INFORMATION
  Report Type: 
  Country: None (occurrence: None)
  Receive Date: 20101222
  Receipt Date: 20101215
  Transmission Date: 20110411
  Serious: Yes (Other)
  Sender: FDA-Public Use
  Company Number: US-US-EMD SERONO, INC.-233578J09USA

PATIENT
  Sex: Female
  Weight: 53 kg

DRUGS (6)
  1. REBIF [Suspect]
     Indication: MULTIPLE SCLEROSIS
     Route: 058
     Dates: start: 20080116
  2. ALLEGRA D 24 HOUR [Concomitant]
  3. OMEPRAZOLE [Concomitant]
     Route: 065
  4. NASONEX [Concomitant]
     Route: 065
  5. VITAMIN D [Concomitant]
     Route: 065
  6. AMITIZA [Concomitant]

REACTIONS (4)
  - COELIAC DISEASE [None]
  - HEADACHE [None]
  - INJECTION SITE ERYTHEMA [None]
  - RAYNAUD'S PHENOMENON [None]
